FAERS Safety Report 10047878 (Version 2)
Quarter: 2014Q2

REPORT INFORMATION
  Report Type: Spontaneous
  Country: US (occurrence: US)
  Receive Date: 20140331
  Receipt Date: 20140610
  Transmission Date: 20141212
  Serious: No
  Sender: FDA-Public Use
  Company Number: US-009507513-1403USA005301

PATIENT
  Age: 78 Year
  Sex: Female
  Weight: 58.96 kg

DRUGS (5)
  1. CLARITIN-D-12 [Suspect]
     Indication: HYPERSENSITIVITY
     Dosage: 5 MG, ONCE
     Route: 048
     Dates: start: 20140210
  2. BENAZEPRIL HYDROCHLORIDE [Concomitant]
     Indication: HYPERTENSION
     Dosage: UNK, UNKNOWN
  3. ATENOLOL [Concomitant]
     Indication: HYPERTENSION
     Dosage: UNK, UNKNOWN
  4. AMLODIPINE [Concomitant]
     Indication: HYPERTENSION
     Dosage: UNK, UNKNOWN
  5. ASPIRIN [Concomitant]
     Indication: HYPERTENSION
     Dosage: UNK, UNKNOWN

REACTIONS (2)
  - Palpitations [Recovered/Resolved]
  - Insomnia [Recovered/Resolved]
